FAERS Safety Report 24293515 (Version 1)
Quarter: 2024Q3

REPORT INFORMATION
  Report Type: Spontaneous
  Country: US (occurrence: None)
  Receive Date: 20240906
  Receipt Date: 20240906
  Transmission Date: 20241016
  Serious: No
  Sender: DOMPE FARMACEUTICI
  Company Number: US-FARMAPROD-202401-0205

PATIENT
  Sex: Female
  Weight: 88.45 kg

DRUGS (30)
  1. OXERVATE [Suspect]
     Active Substance: CENEGERMIN-BKBJ
     Indication: Neurotrophic keratopathy
     Route: 047
     Dates: start: 20240111
  2. OXERVATE [Suspect]
     Active Substance: CENEGERMIN-BKBJ
  3. DOXYCYCLINE HYCLATE [Concomitant]
     Active Substance: DOXYCYCLINE HYCLATE
  4. REFRESH CELLUVISC [Concomitant]
     Active Substance: CARBOXYMETHYLCELLULOSE SODIUM
     Dosage: DROPER GEL
  5. ASPIRIN [Concomitant]
     Active Substance: ASPIRIN
  6. NM-6603 [Concomitant]
     Active Substance: NM-6603
  7. METFORMIN HYDROCHLORIDE [Concomitant]
     Active Substance: METFORMIN HYDROCHLORIDE
  8. AZITHROMYCIN [Concomitant]
     Active Substance: AZITHROMYCIN
  9. EZETIMIBE [Concomitant]
     Active Substance: EZETIMIBE
  10. TOVIAZ [Concomitant]
     Active Substance: FESOTERODINE FUMARATE
  11. METOCLOPRAMIDE HYDROCHLORIDE [Concomitant]
     Active Substance: METOCLOPRAMIDE HYDROCHLORIDE
  12. ESOMEPRAZOLE MAGNESIUM [Concomitant]
     Active Substance: ESOMEPRAZOLE MAGNESIUM
  13. FLUTICASONE PROPIONATE [Concomitant]
     Active Substance: FLUTICASONE PROPIONATE
  14. ALBUTEROL SULFATE [Concomitant]
     Active Substance: ALBUTEROL SULFATE
     Dosage: HYDROFLUOROALKANE, AEROSOL WITH ADAPTER
  15. ALBUTEROL SULFATE [Concomitant]
     Active Substance: ALBUTEROL SULFATE
     Dosage: 2.5 MG/3ML VIAL-NEBULIZER
  16. MONTELUKAST SODIUM [Concomitant]
     Active Substance: MONTELUKAST\MONTELUKAST SODIUM
  17. MOXIFLOXACIN [Concomitant]
     Active Substance: MOXIFLOXACIN
  18. MYRBETRIQ [Concomitant]
     Active Substance: MIRABEGRON
  19. SYMBICORT [Concomitant]
     Active Substance: BUDESONIDE\FORMOTEROL FUMARATE DIHYDRATE
     Dosage: 160-4.5 MCG HYDROFLUOROALKANE, AEROSOL WITH ADAPTER
  20. LISINOPRIL [Concomitant]
     Active Substance: LISINOPRIL
  21. FERROUS SULFATE [Concomitant]
     Active Substance: FERROUS SULFATE
     Dosage: 325(65) MG
  22. REPATHA [Concomitant]
     Active Substance: EVOLOCUMAB
     Dosage: PEN INJECTOR
  23. GABAPENTIN [Concomitant]
     Active Substance: GABAPENTIN
  24. CELECOXIB [Concomitant]
     Active Substance: CELECOXIB
  25. METHOCARBAMOL [Concomitant]
     Active Substance: METHOCARBAMOL
  26. ROPINIROLE HYDROCHLORIDE [Concomitant]
     Active Substance: ROPINIROLE HYDROCHLORIDE
  27. OFLOXACIN [Concomitant]
     Active Substance: OFLOXACIN
  28. EXEMESTANE [Concomitant]
     Active Substance: EXEMESTANE
  29. BRIMONIDINE TARTRATE [Concomitant]
     Active Substance: BRIMONIDINE TARTRATE
  30. OYSCO 500-VIT D3 [Concomitant]
     Dosage: 500 MG-5 MCG

REACTIONS (2)
  - Vision blurred [Unknown]
  - Ocular discomfort [Unknown]
